FAERS Safety Report 20001835 (Version 2)
Quarter: 2025Q3

REPORT INFORMATION
  Report Type: Spontaneous
  Country: EU (occurrence: EU)
  Receive Date: 20211027
  Receipt Date: 20250811
  Transmission Date: 20251021
  Serious: Yes (Hospitalization)
  Sender: MYLAN
  Company Number: None

PATIENT
  Age: 27 Year
  Sex: Male

DRUGS (12)
  1. BUPRENORPHINE [Suspect]
     Active Substance: BUPRENORPHINE
     Indication: Product used for unknown indication
  2. BUPRENORPHINE [Suspect]
     Active Substance: BUPRENORPHINE
     Route: 065
  3. BUPRENORPHINE [Suspect]
     Active Substance: BUPRENORPHINE
     Route: 065
  4. BUPRENORPHINE [Suspect]
     Active Substance: BUPRENORPHINE
  5. QUETIAPINE [Suspect]
     Active Substance: QUETIAPINE
     Indication: Product used for unknown indication
  6. QUETIAPINE [Suspect]
     Active Substance: QUETIAPINE
     Route: 048
  7. QUETIAPINE [Suspect]
     Active Substance: QUETIAPINE
     Route: 048
  8. QUETIAPINE [Suspect]
     Active Substance: QUETIAPINE
  9. LYRICA [Suspect]
     Active Substance: PREGABALIN
     Indication: Product used for unknown indication
  10. LYRICA [Suspect]
     Active Substance: PREGABALIN
     Route: 065
  11. LYRICA [Suspect]
     Active Substance: PREGABALIN
     Route: 065
  12. LYRICA [Suspect]
     Active Substance: PREGABALIN

REACTIONS (4)
  - Coma [Recovered/Resolved with Sequelae]
  - Hepatic cytolysis [Recovered/Resolved]
  - Bradypnoea [Recovered/Resolved]
  - Rhabdomyolysis [Recovered/Resolved]
